FAERS Safety Report 20188591 (Version 1)
Quarter: 2021Q4

REPORT INFORMATION
  Report Type: Spontaneous
  Country: US (occurrence: US)
  Receive Date: 20211215
  Receipt Date: 20211215
  Transmission Date: 20220304
  Serious: Yes (Other)
  Sender: FDA-Public Use
  Company Number: US-JNJFOC-20211215544

PATIENT
  Sex: Male

DRUGS (1)
  1. TYLENOL COLD PLUS FLU SEVERE DAY/NIGHT [Suspect]
     Active Substance: ACETAMINOPHEN\CHLORPHENIRAMINE MALEATE\DEXTROMETHORPHAN HYDROBROMIDE\GUAIFENESIN\PHENYLEPHRINE HYDRO
     Indication: Analgesic therapy
     Route: 065

REACTIONS (2)
  - Hallucination [Unknown]
  - Feeling jittery [Unknown]
